FAERS Safety Report 7399186-9 (Version None)
Quarter: 2011Q2

REPORT INFORMATION
  Report Type: 
  Country: None (occurrence: None)
  Receive Date: 20110407
  Receipt Date: 20110331
  Transmission Date: 20111010
  Serious: Yes (Other)
  Sender: FDA-Public Use
  Company Number: CH-PFIZER INC-2008098575

PATIENT
  Age: 70 Year
  Sex: Male

DRUGS (11)
  1. ZOLOFT [Suspect]
     Indication: DEPRESSION
     Route: 048
     Dates: start: 20081010
  2. SINTROM [Interacting]
     Indication: ATRIAL FIBRILLATION
     Dosage: AS NECESSARY
     Route: 048
     Dates: start: 20081015
  3. METFORMIN [Concomitant]
     Route: 048
  4. METOPROLOL TARTRATE [Concomitant]
     Route: 048
     Dates: start: 20081016
  5. TORSEMIDE [Concomitant]
     Route: 048
  6. SINTROM [Interacting]
     Indication: ATRIAL FLUTTER
  7. AMLODIPINE [Concomitant]
     Route: 048
     Dates: start: 20081004
  8. MICARDIS [Concomitant]
     Route: 048
  9. CORDARONE [Interacting]
     Indication: ATRIAL FIBRILLATION
     Route: 048
     Dates: start: 20081004
  10. CORDARONE [Interacting]
     Indication: ATRIAL FLUTTER
  11. ESIDRIX [Concomitant]
     Route: 048
     Dates: start: 20081017

REACTIONS (2)
  - INTERNATIONAL NORMALISED RATIO INCREASED [None]
  - DRUG INTERACTION [None]
